FAERS Safety Report 4492573-8 (Version None)
Quarter: 2004Q4

REPORT INFORMATION
  Report Type: 
  Country: None (occurrence: None)
  Receive Date: 20041029
  Receipt Date: 20041019
  Transmission Date: 20050328
  Serious: No
  Sender: FDA-Public Use
  Company Number: 2004PK01745

PATIENT
  Age: 84 Year
  Sex: Female

DRUGS (2)
  1. NEXIUM [Suspect]
     Indication: GASTRITIS HAEMORRHAGIC
     Dosage: 40 MG DAILY PO
     Route: 048
     Dates: start: 20040923, end: 20040926
  2. BAYPEN [Suspect]
     Indication: BACTERAEMIA
     Dosage: 4 G DAILY IV
     Route: 042
     Dates: start: 20040922, end: 20040926

REACTIONS (2)
  - AGRANULOCYTOSIS [None]
  - THROMBOCYTOPENIA [None]
